FAERS Safety Report 9862428 (Version 2)
Quarter: 2014Q1

REPORT INFORMATION
  Report Type: Spontaneous
  Country: US (occurrence: US)
  Receive Date: 20140203
  Receipt Date: 20140325
  Transmission Date: 20141002
  Serious: No
  Sender: FDA-Public Use
  Company Number: US-TEVA-460466USA

PATIENT
  Sex: 0

DRUGS (1)
  1. ACTIQ [Suspect]
     Indication: BACK PAIN

REACTIONS (1)
  - Intercepted drug prescribing error [Unknown]
